FAERS Safety Report 7276290-7 (Version None)
Quarter: 2011Q1

REPORT INFORMATION
  Report Type: 
  Country: None (occurrence: None)
  Receive Date: 20110131
  Receipt Date: 20110121
  Transmission Date: 20110831
  Serious: Yes (Other)
  Sender: FDA-Public Use
  Company Number: DSA_44825_2011

PATIENT
  Sex: Female

DRUGS (2)
  1. BUPROPION HCL [Suspect]
     Indication: BORDERLINE PERSONALITY DISORDER
     Dosage: (DF ORAL)
     Route: 048
  2. BUPROPION HCL [Suspect]
     Indication: DEPRESSION
     Dosage: (DF ORAL)
     Route: 048

REACTIONS (7)
  - MYALGIA [None]
  - RASH [None]
  - SWOLLEN TONGUE [None]
  - EYELID OEDEMA [None]
  - ARTHRALGIA [None]
  - TENDON DISORDER [None]
  - FIBROMYALGIA [None]
